FAERS Safety Report 11977680 (Version 2)
Quarter: 2016Q2

REPORT INFORMATION
  Report Type: Spontaneous
  Country: US (occurrence: US)
  Receive Date: 20160129
  Receipt Date: 20160425
  Transmission Date: 20160815
  Serious: Yes (Death, Hospitalization, Other)
  Sender: FDA-Public Use
  Company Number: US-PFIZER INC-2016048759

PATIENT
  Age: 52 Year
  Sex: Male

DRUGS (3)
  1. TESTOSTERONE CYPIONATE. [Suspect]
     Active Substance: TESTOSTERONE CYPIONATE
     Indication: BLOOD TESTOSTERONE DECREASED
     Dosage: UNK, FOR EVERY TWO WEEKS
     Dates: start: 1999, end: 2014
  2. TESTOSTERONE CYPIONATE. [Suspect]
     Active Substance: TESTOSTERONE CYPIONATE
     Indication: HORMONE REPLACEMENT THERAPY
  3. DEPO-TESTOSTERONE [Suspect]
     Active Substance: TESTOSTERONE CYPIONATE
     Indication: HORMONE REPLACEMENT THERAPY
     Dosage: UNK
     Dates: start: 199909, end: 201306

REACTIONS (7)
  - Cerebrovascular accident [Fatal]
  - Respiratory arrest [Fatal]
  - Cardiac failure congestive [Fatal]
  - Cardiac disorder [Fatal]
  - Myocardial infarction [Fatal]
  - General physical health deterioration [Not Recovered/Not Resolved]
  - Cardiogenic shock [Unknown]

NARRATIVE: CASE EVENT DATE: 2006
